FAERS Safety Report 16734596 (Version 1)
Quarter: 2019Q3

REPORT INFORMATION
  Report Type: Other
  Country: AL (occurrence: AL)
  Receive Date: 20190823
  Receipt Date: 20190823
  Transmission Date: 20191005
  Serious: Yes (Hospitalization)
  Sender: FDA-Public Use
  Company Number: AL-INNOGENIX, LLC-2073562

PATIENT
  Age: 13 Month
  Sex: Male

DRUGS (1)
  1. PROPRANOLOL HYDROCHLORIDE. [Suspect]
     Active Substance: PROPRANOLOL HYDROCHLORIDE
     Indication: INFANTILE HAEMANGIOMA
     Route: 048

REACTIONS (3)
  - Product administration error [Unknown]
  - Hypoglycaemic coma [Recovered/Resolved]
  - Off label use [Unknown]
